FAERS Safety Report 4724595-3 (Version None)
Quarter: 2005Q3

REPORT INFORMATION
  Report Type: 
  Country: None (occurrence: None)
  Receive Date: 20050721
  Receipt Date: 20050711
  Transmission Date: 20060218
  Serious: Yes (Disabling, Other)
  Sender: FDA-Public Use
  Company Number: 2004097064

PATIENT
  Age: 65 Year
  Sex: Female
  Weight: 68 kg

DRUGS (7)
  1. BEXTRA [Suspect]
     Indication: ARTHRITIS
     Dosage: 20 MG (20 MG, 1 IN 1 D), ORAL
     Route: 048
     Dates: start: 20040303, end: 20040308
  2. LIPITOR [Concomitant]
  3. MOXON (MOXONIDINE) [Concomitant]
  4. NEXIUM [Concomitant]
  5. DEANXIT (FLUPENTIXOL, MELITRACEN) [Concomitant]
  6. LANSOPRAZOLE [Concomitant]
  7. VENORUTON (TROXERUTIN) [Concomitant]

REACTIONS (5)
  - PAIN OF SKIN [None]
  - RASH VESICULAR [None]
  - SCAB [None]
  - SCAR [None]
  - SKIN DISORDER [None]
